FAERS Safety Report 20654580 (Version 1)
Quarter: 2022Q1

REPORT INFORMATION
  Report Type: Spontaneous
  Country: US (occurrence: US)
  Receive Date: 20220330
  Receipt Date: 20220330
  Transmission Date: 20220423
  Serious: No
  Sender: FDA-Public Use
  Company Number: US-PFIZER INC-2021848079

PATIENT
  Age: 65 Year
  Sex: Female
  Weight: 90.26 kg

DRUGS (1)
  1. IBRANCE [Suspect]
     Active Substance: PALBOCICLIB
     Indication: Breast cancer female
     Dosage: 125 MG, DAILY FOR 21 DAYS AND THEN OFF FOR 7 DAYS
     Route: 048

REACTIONS (1)
  - Diarrhoea [Not Recovered/Not Resolved]
